FAERS Safety Report 4714255-7 (Version None)
Quarter: 2005Q3

REPORT INFORMATION
  Report Type: 
  Country: None (occurrence: None)
  Receive Date: 20050714
  Receipt Date: 20050705
  Transmission Date: 20060218
  Serious: Yes (Hospitalization)
  Sender: FDA-Public Use
  Company Number: PHRM2005FR02031

PATIENT
  Age: 57 Year
  Sex: Male

DRUGS (9)
  1. GLEEVEC [Suspect]
     Indication: CHRONIC MYELOID LEUKAEMIA
     Dosage: 400 MG/DAY
     Route: 048
     Dates: start: 20050101
  2. ACETAMINOPHEN [Suspect]
     Indication: PYREXIA
     Dosage: 3 G/DAY
     Route: 065
     Dates: start: 20050627, end: 20050627
  3. ACETAMINOPHEN [Suspect]
     Dosage: 2 G/DAY
     Route: 065
     Dates: start: 20050628, end: 20050628
  4. CORTANCYL [Concomitant]
     Indication: VASCULITIS
     Route: 048
     Dates: start: 19960101
  5. PLAQUENIL [Concomitant]
     Indication: VASCULITIS
     Route: 048
     Dates: start: 19960101
  6. AMIODARONE [Concomitant]
     Indication: ARRHYTHMIA
     Route: 048
  7. RYTHMOL [Concomitant]
     Indication: ARRHYTHMIA
     Route: 048
  8. RAMIPRIL [Concomitant]
     Route: 048
  9. PREVISCAN [Concomitant]
     Route: 048

REACTIONS (10)
  - ALANINE AMINOTRANSFERASE INCREASED [None]
  - ASPARTATE AMINOTRANSFERASE INCREASED [None]
  - CYTOLYTIC HEPATITIS [None]
  - DRUG INTERACTION [None]
  - GAMMA-GLUTAMYLTRANSFERASE INCREASED [None]
  - HEADACHE [None]
  - NAUSEA [None]
  - PROTHROMBIN LEVEL DECREASED [None]
  - PYREXIA [None]
  - VOMITING [None]
